FAERS Safety Report 12353914 (Version 3)
Quarter: 2016Q3

REPORT INFORMATION
  Report Type: Report from Study
  Country: US (occurrence: US)
  Receive Date: 20160511
  Receipt Date: 20160907
  Transmission Date: 20161109
  Serious: Yes (Death, Life-Threatening, Hospitalization)
  Sender: FDA-Public Use
  Company Number: US-ROCHE-1753514

PATIENT
  Age: 64 Year
  Sex: Female

DRUGS (3)
  1. CAPECITABINE. [Suspect]
     Active Substance: CAPECITABINE
     Indication: ADENOCARCINOMA GASTRIC
     Dosage: ON DAY 1-14 OF 21-DAY CYCLE?DATE OF LAST DOSE PRIOR TO AE ONSET: 18/APR/2016
     Route: 048
     Dates: start: 20160404, end: 20160419
  2. PIPERACILLIN SODIUM [Concomitant]
     Active Substance: PIPERACILLIN SODIUM
  3. CISPLATIN. [Suspect]
     Active Substance: CISPLATIN
     Indication: ADENOCARCINOMA GASTRIC
     Dosage: ON DAY 1 OF 21-DAY CYCLE?MOST RECENT DOSE PRIOR TO EVENT ONSET: 04/APR/2016
     Route: 042
     Dates: start: 20160404

REACTIONS (3)
  - Febrile neutropenia [Not Recovered/Not Resolved]
  - Septic shock [Fatal]
  - Respiratory failure [Not Recovered/Not Resolved]

NARRATIVE: CASE EVENT DATE: 20160419
